FAERS Safety Report 24968451 (Version 1)
Quarter: 2025Q1

REPORT INFORMATION
  Report Type: Spontaneous
  Country: US (occurrence: US)
  Receive Date: 20250214
  Receipt Date: 20250214
  Transmission Date: 20250409
  Serious: Yes (Other)
  Sender: AUROBINDO
  Company Number: US-AUROBINDO-AUR-APL-2025-005256

PATIENT
  Age: 66 Year
  Sex: Female

DRUGS (7)
  1. MITOMYCIN [Suspect]
     Active Substance: MITOMYCIN
     Indication: Bleb revision
     Route: 031
  2. LIDOCAINE [Suspect]
     Active Substance: LIDOCAINE
     Indication: Bleb revision
     Route: 031
  3. LOTEPREDNOL [Concomitant]
     Active Substance: LOTEPREDNOL
     Indication: Product used for unknown indication
     Dosage: UNK, 3 TIMES A DAY
     Route: 061
  4. CEPHALEXIN [Concomitant]
     Active Substance: CEPHALEXIN
     Indication: Product used for unknown indication
     Dosage: 500 MILLIGRAM, FOUR TIMES/DAY
     Route: 065
  5. PREDNISOLONE [Concomitant]
     Active Substance: PREDNISOLONE
     Indication: Product used for unknown indication
     Route: 065
  6. DEXAMETHASONE [Concomitant]
     Active Substance: DEXAMETHASONE
     Indication: Product used for unknown indication
     Route: 065
  7. KETOROLAC [Concomitant]
     Active Substance: KETOROLAC TROMETHAMINE
     Indication: Product used for unknown indication
     Route: 065

REACTIONS (7)
  - Necrosis [Unknown]
  - Hyphaema [Unknown]
  - Erythema [Unknown]
  - Eyelid ptosis [Unknown]
  - Inflammation [Unknown]
  - Oedema [Unknown]
  - Periorbital pain [Unknown]
